FAERS Safety Report 13238041 (Version 1)
Quarter: 2017Q1

REPORT INFORMATION
  Report Type: Spontaneous
  Country: US (occurrence: US)
  Receive Date: 20170215
  Receipt Date: 20170215
  Transmission Date: 20170428
  Serious: Yes (Other)
  Sender: FDA-Public Use
  Company Number: None

PATIENT
  Age: 4 Year
  Sex: Male
  Weight: 13.5 kg

DRUGS (3)
  1. SOURCE NATURALS MELATONIN [Concomitant]
  2. MOTRIN [Suspect]
     Active Substance: IBUPROFEN
     Indication: PYREXIA
     Dosage: ?          QUANTITY:1 TEASPOON(S); EVERY 6 HOURS?
     Route: 048
     Dates: start: 20170211, end: 20170212
  3. SMARTY PANTS VITAMINS [Concomitant]

REACTIONS (4)
  - Delusion [None]
  - Psychomotor hyperactivity [None]
  - Crying [None]
  - Abnormal behaviour [None]

NARRATIVE: CASE EVENT DATE: 20170212
